FAERS Safety Report 5367353-1 (Version None)
Quarter: 2007Q2

REPORT INFORMATION
  Report Type: 
  Country: None (occurrence: None)
  Receive Date: 20070622
  Receipt Date: 20060731
  Transmission Date: 20071010
  Serious: No
  Sender: FDA-Public Use
  Company Number: US-ASTRAZENECA-2006UW15316

PATIENT
  Sex: Female

DRUGS (2)
  1. PULMICORT RESPULES [Suspect]
     Route: 055
     Dates: start: 20060101
  2. DUONEB [Concomitant]

REACTIONS (3)
  - DRUG INEFFECTIVE [None]
  - DYSPNOEA [None]
  - MEDICATION ERROR [None]
